FAERS Safety Report 5527722-3 (Version None)
Quarter: 2007Q4

REPORT INFORMATION
  Report Type: 
  Country: None (occurrence: None)
  Receive Date: 20071123
  Receipt Date: 20071113
  Transmission Date: 20080405
  Serious: Yes (Life-Threatening, Other)
  Sender: FDA-Public Use
  Company Number: MC200700704

PATIENT
  Age: 50 Year
  Sex: Male
  Weight: 80 kg

DRUGS (3)
  1. ANGIOMAX [Suspect]
     Indication: PERCUTANEOUS CORONARY INTERVENTION
     Dosage: 0.75 MG/KG, BOLUS, IV BOLUS; 1.75 MG/KG, HR, INTRAVENOUS
     Route: 040
     Dates: start: 20071113, end: 20071113
  2. ANGIOMAX [Suspect]
     Indication: PERCUTANEOUS CORONARY INTERVENTION
     Dosage: 0.75 MG/KG, BOLUS, IV BOLUS; 1.75 MG/KG, HR, INTRAVENOUS
     Route: 040
     Dates: start: 20071113
  3. PLAVIX [Concomitant]

REACTIONS (3)
  - CORONARY ARTERY DISSECTION [None]
  - IATROGENIC INJURY [None]
  - PROCEDURAL COMPLICATION [None]
